FAERS Safety Report 5768522-9 (Version None)
Quarter: 2008Q2

REPORT INFORMATION
  Report Type: 
  Country: None (occurrence: None)
  Receive Date: 20080612
  Receipt Date: 20080306
  Transmission Date: 20081010
  Serious: No
  Sender: FDA-Public Use
  Company Number: US-ABBOTT-08P-163-0441540-00

PATIENT
  Sex: Female
  Weight: 67.192 kg

DRUGS (10)
  1. HUMIRA [Suspect]
     Indication: CROHN'S DISEASE
     Route: 058
     Dates: start: 20071101, end: 20071101
  2. HUMIRA [Suspect]
  3. HUMIRA [Suspect]
  4. VENLAFAXINE HCL [Concomitant]
     Indication: DEPRESSION
     Route: 048
  5. LAMOTRIGINE [Concomitant]
     Indication: BIPOLAR DISORDER
     Route: 048
  6. QUETIAPINE FUMARATE [Concomitant]
     Indication: BIPOLAR DISORDER
     Route: 048
  7. LITHABID [Concomitant]
     Indication: DRUG USE FOR UNKNOWN INDICATION
     Route: 048
  8. AMILERADE [Concomitant]
     Indication: DRUG USE FOR UNKNOWN INDICATION
     Route: 048
  9. PROPRANOLOL [Concomitant]
     Indication: TREMOR
     Route: 048
  10. ACTOVELA [Concomitant]
     Indication: DRUG USE FOR UNKNOWN INDICATION
     Route: 048

REACTIONS (1)
  - INJECTION SITE BRUISING [None]
